FAERS Safety Report 8765596 (Version 4)
Quarter: 2014Q1

REPORT INFORMATION
  Report Type: Spontaneous
  Country: JP (occurrence: JP)
  Receive Date: 20120902
  Receipt Date: 20140123
  Transmission Date: 20141002
  Serious: Yes (Hospitalization)
  Sender: FDA-Public Use
  Company Number: PHHY2012JP075516

PATIENT
  Sex: Female

DRUGS (5)
  1. ZOMETA [Suspect]
     Indication: METASTASES TO BONE
     Dosage: 4 MG PER MONTH
     Route: 041
     Dates: start: 200709, end: 20091111
  2. HERCEPTIN [Concomitant]
     Dosage: UNK UKN, UNK
     Dates: start: 200711
  3. TS-1 [Concomitant]
     Dosage: UNK UKN, UNK
  4. XELODA [Concomitant]
     Dosage: UNK UKN, UNK
  5. TAXOL [Concomitant]
     Dosage: UNK UKN, UNK

REACTIONS (14)
  - Osteonecrosis of jaw [Recovered/Resolved]
  - Exposed bone in jaw [Recovered/Resolved]
  - Bone disorder [Recovering/Resolving]
  - Toothache [Unknown]
  - Bone fistula [Recovered/Resolved]
  - Impaired healing [Recovering/Resolving]
  - Erythema [Unknown]
  - Swelling [Unknown]
  - Osteomyelitis [Unknown]
  - Pain [Unknown]
  - Gingivitis [Unknown]
  - Osteolysis [Recovered/Resolved]
  - Soft tissue infection [Unknown]
  - Purulent discharge [Unknown]
